FAERS Safety Report 6694364-6 (Version None)
Quarter: 2010Q2

REPORT INFORMATION
  Report Type: 
  Country: None (occurrence: None)
  Receive Date: 20100423
  Receipt Date: 20100416
  Transmission Date: 20101027
  Serious: Yes (Hospitalization)
  Sender: FDA-Public Use
  Company Number: US-ASTRAZENECA-2010SE16999

PATIENT
  Sex: Female
  Weight: 75.7 kg

DRUGS (5)
  1. SEROQUEL XR [Suspect]
     Indication: ANXIETY
     Route: 048
  2. SEROQUEL XR [Suspect]
     Indication: PANIC DISORDER
     Route: 048
  3. CLONAZEPAM [Concomitant]
     Indication: ANXIETY
  4. CLONAZEPAM [Concomitant]
     Indication: PANIC DISORDER
  5. ATENOLOL [Concomitant]
     Indication: BLOOD PRESSURE

REACTIONS (5)
  - DRUG DOSE OMISSION [None]
  - ILL-DEFINED DISORDER [None]
  - INSOMNIA [None]
  - MENTAL DISORDER [None]
  - TREMOR [None]
